FAERS Safety Report 7514794-X (Version None)
Quarter: 2011Q2

REPORT INFORMATION
  Report Type: 
  Country: None (occurrence: None)
  Receive Date: 20110422
  Receipt Date: 20100521
  Transmission Date: 20111010
  Serious: Yes (Disabling)
  Sender: FDA-Public Use
  Company Number: WAES 1005USA03322

PATIENT
  Age: 64 Year
  Sex: Female

DRUGS (1)
  1. SINGULAIR [Suspect]
     Indication: RHINITIS ALLERGIC
     Dosage: PO
     Route: 048

REACTIONS (4)
  - FEELING ABNORMAL [None]
  - RASH [None]
  - EYELID OEDEMA [None]
  - NAUSEA [None]
